FAERS Safety Report 19453202 (Version 1)
Quarter: 2021Q2

REPORT INFORMATION
  Report Type: Spontaneous
  Country: US (occurrence: US)
  Receive Date: 20210623
  Receipt Date: 20210623
  Transmission Date: 20210717
  Serious: No
  Sender: FDA-Public Use
  Company Number: US-BIOVITRUM-2021US6393

PATIENT
  Age: 21 Year
  Sex: Female

DRUGS (1)
  1. KINERET [Suspect]
     Active Substance: ANAKINRA
     Indication: IMMUNOLOGY TEST ABNORMAL
     Route: 058
     Dates: start: 202002

REACTIONS (5)
  - Impaired healing [Unknown]
  - Scratch [Unknown]
  - Contusion [Unknown]
  - Injury [Unknown]
  - Off label use [Unknown]

NARRATIVE: CASE EVENT DATE: 202002
